FAERS Safety Report 23937909 (Version 1)
Quarter: 2024Q2

REPORT INFORMATION
  Report Type: Spontaneous
  Country: US (occurrence: US)
  Receive Date: 20240604
  Receipt Date: 20240604
  Transmission Date: 20240716
  Serious: No
  Sender: FDA-Public Use
  Company Number: US-BRISTOL-MYERS SQUIBB COMPANY-2024-089980

PATIENT
  Age: 56 Year
  Sex: Female
  Weight: 98.88 kg

DRUGS (1)
  1. POMALYST [Suspect]
     Active Substance: POMALIDOMIDE
     Indication: Plasma cell myeloma
     Dosage: FREQUENCY-DAILY
     Route: 048

REACTIONS (3)
  - Illness [Unknown]
  - Cough [Unknown]
  - Oropharyngeal pain [Unknown]
